FAERS Safety Report 24348096 (Version 1)
Quarter: 2024Q3

REPORT INFORMATION
  Report Type: Report from Study
  Country: US (occurrence: US)
  Receive Date: 20240923
  Receipt Date: 20240923
  Transmission Date: 20241017
  Serious: Yes (Other)
  Sender: ROCHE
  Company Number: US-ROCHE-10000082913

PATIENT
  Age: 53 Year
  Sex: Male

DRUGS (1)
  1. OCRELIZUMAB [Suspect]
     Active Substance: OCRELIZUMAB
     Indication: Multiple sclerosis
     Dosage: DATE OF TREATMENT : 20/DEC/2023?LAST DOSE OF OCREVUS IN JUNE 2024
     Route: 042

REACTIONS (1)
  - Diverticulitis [Not Recovered/Not Resolved]
